FAERS Safety Report 4469394-5 (Version None)
Quarter: 2004Q4

REPORT INFORMATION
  Report Type: 
  Country: None (occurrence: None)
  Receive Date: 20041008
  Receipt Date: 20040507
  Transmission Date: 20050328
  Serious: No
  Sender: FDA-Public Use
  Company Number: US-BRISTOL-MYERS SQUIBB COMPANY-12584330

PATIENT
  Age: 70 Year
  Sex: Male

DRUGS (1)
  1. AVAPRO [Suspect]
     Indication: HYPERTENSION
     Route: 048
     Dates: end: 20040507

REACTIONS (1)
  - GASTROINTESTINAL OEDEMA [None]
